FAERS Safety Report 21734288 (Version 3)
Quarter: 2023Q2

REPORT INFORMATION
  Report Type: Spontaneous
  Country: FR (occurrence: FR)
  Receive Date: 20221215
  Receipt Date: 20230522
  Transmission Date: 20230721
  Serious: Yes (Disabling)
  Sender: FDA-Public Use
  Company Number: FR-MYLANLABS-2022M1015825

PATIENT
  Age: 70 Year
  Sex: Female
  Weight: 70 kg

DRUGS (4)
  1. LETROZOLE [Suspect]
     Active Substance: LETROZOLE
     Indication: Hormone therapy
     Dosage: 2.5 MILLIGRAM, QD, DAILY
     Route: 048
     Dates: end: 20220510
  2. LETROZOLE [Suspect]
     Active Substance: LETROZOLE
     Indication: Breast neoplasm
     Dosage: UNK (2.5)
     Route: 048
     Dates: start: 202003, end: 20220603
  3. TAMOXIFEN [Suspect]
     Active Substance: TAMOXIFEN
     Indication: Product used for unknown indication
     Dosage: UNK
     Route: 065
  4. INFLUVAC [Concomitant]
     Active Substance: INFLUENZA VIRUS VACCINE TRIVALENT TYPE A+B
     Indication: Influenza immunisation
     Dosage: UNK
     Route: 065

REACTIONS (30)
  - Blood pressure decreased [Unknown]
  - Fall [Unknown]
  - Arthropathy [Unknown]
  - Pain [Unknown]
  - Joint stiffness [Unknown]
  - Feeling abnormal [Unknown]
  - Motor dysfunction [Unknown]
  - Temperature intolerance [Unknown]
  - Meniscus injury [Recovered/Resolved]
  - Amnesia [Not Recovered/Not Resolved]
  - Malaise [Unknown]
  - Gastrointestinal disorder [Unknown]
  - Constipation [Unknown]
  - Weight increased [Unknown]
  - Insomnia [Unknown]
  - Cough [Unknown]
  - Forced vital capacity decreased [Unknown]
  - Mixed anxiety and depressive disorder [Unknown]
  - Vomiting [Recovered/Resolved]
  - Myalgia [Recovered/Resolved with Sequelae]
  - Malnutrition [Not Recovered/Not Resolved]
  - Tooth loss [Recovering/Resolving]
  - Arthralgia [Recovered/Resolved with Sequelae]
  - Fatigue [Recovered/Resolved with Sequelae]
  - Phobia of driving [Unknown]
  - Food intolerance [Unknown]
  - Psychiatric symptom [Unknown]
  - Gait disturbance [Unknown]
  - Dry skin [Unknown]
  - Extra dose administered [Unknown]

NARRATIVE: CASE EVENT DATE: 20200301
